FAERS Safety Report 10044513 (Version 1)
Quarter: 2014Q1

REPORT INFORMATION
  Report Type: Spontaneous
  Country: AU (occurrence: CA)
  Receive Date: 20140328
  Receipt Date: 20140328
  Transmission Date: 20141002
  Serious: Yes (Hospitalization, Other)
  Sender: FDA-Public Use
  Company Number: AU-DSJP-DSU-2014-101823

PATIENT
  Sex: 0

DRUGS (2)
  1. OLMETEC PLUS 40/25 [Suspect]
     Indication: PRODUCT USED FOR UNKNOWN INDICATION
     Dosage: 40/25 MG, QD
     Route: 048
  2. JANUVIA [Suspect]
     Indication: PRODUCT USED FOR UNKNOWN INDICATION
     Dosage: 100 MG, QD

REACTIONS (3)
  - Myocardial infarction [Unknown]
  - Stent placement [Unknown]
  - Atrioventricular block [Unknown]
